FAERS Safety Report 8576339-5 (Version None)
Quarter: 2012Q3

REPORT INFORMATION
  Report Type: 
  Country: None (occurrence: None)
  Receive Date: 20120807
  Receipt Date: 20120726
  Transmission Date: 20120928
  Serious: Yes (Hospitalization)
  Sender: FDA-Public Use
  Company Number: JP-PFIZER INC-2012135881

PATIENT
  Age: 78 Year
  Sex: Male

DRUGS (2)
  1. ENALAPRIL MALEATE [Suspect]
     Dosage: 5 MG, 1X/DAY
     Route: 048
     Dates: end: 20120503
  2. ESTRACYT [Suspect]
     Dosage: 313.4 MG, 2X/DAY
     Route: 048
     Dates: start: 20120420, end: 20120503

REACTIONS (1)
  - ANGIOEDEMA [None]
